FAERS Safety Report 23279702 (Version 2)
Quarter: 2023Q4

REPORT INFORMATION
  Report Type: Spontaneous
  Country: BR (occurrence: BR)
  Receive Date: 20231210
  Receipt Date: 20231219
  Transmission Date: 20240110
  Serious: Yes (Death, Other)
  Sender: FDA-Public Use
  Company Number: BR-BoehringerIngelheim-2023-BI-277117

PATIENT
  Age: 95 Year
  Sex: Male
  Weight: 75 kg

DRUGS (4)
  1. PRADAXA [Suspect]
     Active Substance: DABIGATRAN ETEXILATE MESYLATE
     Indication: Arterial occlusive disease
     Dosage: PRADAXA 110MG, TWO TABLETS A DAY WITH TWO GLASSES OF WINE.
     Route: 048
     Dates: end: 20230928
  2. PRADAXA [Suspect]
     Active Substance: DABIGATRAN ETEXILATE MESYLATE
     Indication: Thrombosis
  3. SIMVASTATIN [Concomitant]
     Active Substance: SIMVASTATIN
     Indication: Blood cholesterol increased
     Dosage: AT NIGHT
     Route: 048
     Dates: end: 20230928
  4. PURAN [Concomitant]
     Active Substance: LEVOTHYROXINE SODIUM
     Indication: Blood thyroid stimulating hormone abnormal
     Dosage: WHILE FASTING.
     Route: 048
     Dates: end: 20230928

REACTIONS (8)
  - Death [Fatal]
  - Cardiac failure [Unknown]
  - Pulmonary oedema [Unknown]
  - Agitation [Unknown]
  - Dyspnoea [Unknown]
  - Peripheral swelling [Unknown]
  - Product administration error [Unknown]
  - Hypersensitivity [Unknown]

NARRATIVE: CASE EVENT DATE: 20210101
